FAERS Safety Report 7005179-3 (Version None)
Quarter: 2010Q3

REPORT INFORMATION
  Report Type: 
  Country: None (occurrence: None)
  Receive Date: 20100921
  Receipt Date: 20100907
  Transmission Date: 20110219
  Serious: Yes (Other)
  Sender: FDA-Public Use
  Company Number: US-BAYER-200922387NA

PATIENT
  Sex: Male

DRUGS (5)
  1. MAGNEVIST [Suspect]
     Indication: NUCLEAR MAGNETIC RESONANCE IMAGING
  2. PROHANCE [Suspect]
     Indication: NUCLEAR MAGNETIC RESONANCE IMAGING
  3. MULTIHANCE [Suspect]
     Indication: NUCLEAR MAGNETIC RESONANCE IMAGING
  4. OMNISCAN [Suspect]
     Indication: NUCLEAR MAGNETIC RESONANCE IMAGING
  5. OPTIMARK [Suspect]
     Indication: NUCLEAR MAGNETIC RESONANCE IMAGING

REACTIONS (2)
  - NEPHROGENIC SYSTEMIC FIBROSIS [None]
  - PAIN [None]
